FAERS Safety Report 21086595 (Version 1)
Quarter: 2022Q3

REPORT INFORMATION
  Report Type: Other
  Country: GB (occurrence: None)
  Receive Date: 20220715
  Receipt Date: 20220715
  Transmission Date: 20221027
  Serious: Yes (Death)
  Sender: FDA-Public Use
  Company Number: GB-ROCHE-3101877

PATIENT
  Sex: Male

DRUGS (2)
  1. ESBRIET [Suspect]
     Active Substance: PIRFENIDONE
     Indication: Idiopathic pulmonary fibrosis
     Dosage: 3 TABLETS THREE TIMES PER DAY
     Route: 048
     Dates: start: 20220110
  2. ESBRIET [Suspect]
     Active Substance: PIRFENIDONE
     Dosage: 9 TABLETS DAILY
     Route: 048
     Dates: start: 20220202

REACTIONS (3)
  - Treatment noncompliance [Unknown]
  - Underdose [Unknown]
  - Death [Fatal]

NARRATIVE: CASE EVENT DATE: 20220711
